FAERS Safety Report 6988907-2 (Version None)
Quarter: 2010Q3

REPORT INFORMATION
  Report Type: 
  Country: None (occurrence: None)
  Receive Date: 20100916
  Receipt Date: 20090728
  Transmission Date: 20110219
  Serious: Yes (Hospitalization, Other)
  Sender: FDA-Public Use
  Company Number: SE-PFIZER INC-2009246381

PATIENT
  Age: 56 Year
  Sex: Female

DRUGS (1)
  1. LYRICA [Suspect]
     Dosage: 7.5 G, UNK

REACTIONS (5)
  - AGITATION [None]
  - COORDINATION ABNORMAL [None]
  - HYPOTONIA [None]
  - OVERDOSE [None]
  - RESPIRATORY RATE DECREASED [None]
